FAERS Safety Report 8558577-0 (Version None)
Quarter: 2012Q3

REPORT INFORMATION
  Report Type: 
  Country: None (occurrence: None)
  Receive Date: 20120801
  Receipt Date: 20120730
  Transmission Date: 20120928
  Serious: Yes (Hospitalization)
  Sender: FDA-Public Use
  Company Number: CA-MSD-1208CAN000371

PATIENT

DRUGS (1)
  1. TEMODAL [Suspect]
     Indication: SOFT TISSUE NEOPLASM
     Dosage: 200 MG, QD
     Route: 048
     Dates: start: 20120716, end: 20120720

REACTIONS (4)
  - DISEASE PROGRESSION [None]
  - OEDEMA PERIPHERAL [None]
  - THROMBOSIS [None]
  - ABDOMINAL PAIN LOWER [None]
